FAERS Safety Report 4459762-X (Version None)
Quarter: 2004Q3

REPORT INFORMATION
  Report Type: 
  Country: None (occurrence: None)
  Receive Date: 20040928
  Receipt Date: 20040122
  Transmission Date: 20050211
  Serious: Yes (Hospitalization, Other)
  Sender: FDA-Public Use
  Company Number: US-BRISTOL-MYERS SQUIBB COMPANY-12485116

PATIENT
  Age: 45 Year
  Sex: Female

DRUGS (6)
  1. KENALOG-40 [Suspect]
     Indication: BURSITIS
     Dosage: ROUTE: ^INJECTION^
     Dates: start: 20031216, end: 20031216
  2. KENALOG-40 [Suspect]
     Indication: ARTHRALGIA
     Dosage: ROUTE: ^INJECTION^
     Dates: start: 20031216, end: 20031216
  3. ULTRAM [Concomitant]
  4. PLAQUENIL [Concomitant]
  5. CELEBREX [Concomitant]
  6. PROLIXIN [Concomitant]

REACTIONS (2)
  - ANAPHYLACTIC REACTION [None]
  - ROAD TRAFFIC ACCIDENT [None]
